FAERS Safety Report 9151993 (Version 1)
Quarter: 2013Q1

REPORT INFORMATION
  Report Type: Spontaneous
  Country: US (occurrence: None)
  Receive Date: 20130308
  Receipt Date: 20130308
  Transmission Date: 20140127
  Serious: Yes (Life-Threatening, Hospitalization)
  Sender: FDA-Public Use
  Company Number: None

PATIENT
  Age: 37 Year
  Sex: Female

DRUGS (1)
  1. OPANA [Suspect]
     Dates: start: 20121229, end: 20121229

REACTIONS (4)
  - Haemolytic anaemia [None]
  - Thrombotic thrombocytopenic purpura [None]
  - Renal failure [None]
  - Hepatitis C [None]
